FAERS Safety Report 8292297-5 (Version None)
Quarter: 2012Q2

REPORT INFORMATION
  Report Type: 
  Country: None (occurrence: None)
  Receive Date: 20120417
  Receipt Date: 20120412
  Transmission Date: 20120825
  Serious: Yes (Hospitalization)
  Sender: FDA-Public Use
  Company Number: PHHY2012KR031077

PATIENT
  Age: 69 Year
  Sex: Male

DRUGS (2)
  1. PREDNISOLONE [Concomitant]
     Indication: PROPHYLAXIS
     Route: 048
  2. NAFCILLIN [Suspect]
     Indication: GRAM STAIN POSITIVE
     Dosage: 1 G, PER DAY
     Route: 042

REACTIONS (7)
  - NEUTROPENIA [None]
  - DECREASED APPETITE [None]
  - ERYTHEMA [None]
  - DYSPEPSIA [None]
  - BLISTER [None]
  - ABDOMINAL DISTENSION [None]
  - DERMATITIS BULLOUS [None]
